FAERS Safety Report 7508568-3 (Version None)
Quarter: 2011Q2

REPORT INFORMATION
  Report Type: 
  Country: None (occurrence: None)
  Receive Date: 20110519
  Receipt Date: 20110507
  Transmission Date: 20111010
  Serious: Yes (Other)
  Sender: FDA-Public Use
  Company Number: 2011AP000934

PATIENT
  Age: 51 Year
  Sex: Male

DRUGS (2)
  1. AZATHIOPRINE [Suspect]
     Indication: COLITIS ULCERATIVE
     Dosage: 250 MG;QD, 50 MG;QD
  2. ALLOPURINOL [Suspect]
     Indication: PRODUCT USED FOR UNKNOWN INDICATION
     Dosage: 300 MG;QD

REACTIONS (4)
  - APLASIA PURE RED CELL [None]
  - PLATELET COUNT INCREASED [None]
  - DRUG INTERACTION [None]
  - WHITE BLOOD CELL COUNT DECREASED [None]
